FAERS Safety Report 12296824 (Version 1)
Quarter: 2016Q2

REPORT INFORMATION
  Report Type: Spontaneous
  Country: CL (occurrence: CL)
  Receive Date: 20160422
  Receipt Date: 20160422
  Transmission Date: 20160815
  Serious: Yes (Death, Life-Threatening, Hospitalization, Other)
  Sender: FDA-Public Use
  Company Number: CL-ROXANE LABORATORIES, INC.-2016-RO-00738RO

PATIENT
  Age: 38 Year
  Sex: Female

DRUGS (2)
  1. METHYLPREDNISOLONE. [Suspect]
     Active Substance: METHYLPREDNISOLONE
     Indication: SYSTEMIC LUPUS ERYTHEMATOSUS
     Dosage: 3 G
     Route: 065
  2. CYCLOPHOSPHAMIDE. [Suspect]
     Active Substance: CYCLOPHOSPHAMIDE
     Indication: SYSTEMIC LUPUS ERYTHEMATOSUS
     Dosage: 500 MG
     Route: 065

REACTIONS (13)
  - Pulmonary necrosis [Unknown]
  - Colitis [Unknown]
  - Bronchial obstruction [Unknown]
  - Escherichia infection [Unknown]
  - Extremity necrosis [Unknown]
  - Death [Fatal]
  - Respiratory failure [Unknown]
  - Bronchopulmonary aspergillosis [Unknown]
  - Klebsiella infection [Unknown]
  - Cytomegalovirus infection [Unknown]
  - Septic shock [Unknown]
  - Pyelonephritis acute [Unknown]
  - Clostridium difficile infection [Unknown]
